FAERS Safety Report 7307719-3 (Version None)
Quarter: 2011Q1

REPORT INFORMATION
  Report Type: 
  Country: None (occurrence: None)
  Receive Date: 20110223
  Receipt Date: 20110217
  Transmission Date: 20110831
  Serious: Yes (Death)
  Sender: FDA-Public Use
  Company Number: BE-ABBOTT-11P-013-0705856-00

PATIENT
  Sex: Male
  Weight: 82 kg

DRUGS (3)
  1. LUCRIN DEPOT 11.25 MG [Suspect]
     Indication: PROSTATE CANCER
  2. LUPRON DEPOT [Suspect]
     Indication: PROSTATE CANCER
  3. ANDROCUR [Concomitant]
     Indication: PRODUCT USED FOR UNKNOWN INDICATION

REACTIONS (1)
  - THROMBOTIC STROKE [None]
